FAERS Safety Report 4449800-2 (Version None)
Quarter: 2004Q3

REPORT INFORMATION
  Report Type: 
  Country: None (occurrence: None)
  Receive Date: 20040802
  Receipt Date: 20030820
  Transmission Date: 20050211
  Serious: Yes (Other)
  Sender: FDA-Public Use
  Company Number: US-SHR-03-013361

PATIENT
  Sex: Female
  Weight: 63.5 kg

DRUGS (1)
  1. MAGNEVIST [Suspect]
     Indication: ANGIOGRAM
     Dosage: 30 ML, 2ML/SECOND, INTRAVENOUS
     Route: 042
     Dates: start: 20030820, end: 20030820

REACTIONS (5)
  - COUGH [None]
  - DYSPHAGIA [None]
  - DYSPNOEA [None]
  - RESPIRATORY DISTRESS [None]
  - TONGUE DISORDER [None]
